FAERS Safety Report 20708706 (Version 1)
Quarter: 2022Q2

REPORT INFORMATION
  Report Type: Spontaneous
  Country: ES (occurrence: ES)
  Receive Date: 20220414
  Receipt Date: 20220414
  Transmission Date: 20220721
  Serious: Yes (Hospitalization, Other)
  Sender: FDA-Public Use
  Company Number: ES-AEMPS-1150343

PATIENT
  Age: 65 Year
  Sex: Female

DRUGS (11)
  1. AMLODIPINE [Interacting]
     Active Substance: AMLODIPINE BESYLATE
     Indication: Hypertension
     Dosage: 1 DOSAGE FORM, ONCE A DAY(1 COMPRIMIDO AL D?A)(1 TABLET A DAY)
     Route: 048
     Dates: start: 201804
  2. TELMISARTAN [Interacting]
     Active Substance: TELMISARTAN
     Indication: Hypertension
     Dosage: 1 DOSAGE FORM, ONCE A DAY(1 COMPRIMIDO CADA 24 HORAS (1 TABLET EVERY 24 HOURS)
     Route: 048
     Dates: start: 20170626, end: 20211214
  3. INSULIN GLARGINE [Concomitant]
     Active Substance: INSULIN GLARGINE
     Indication: Diabetes mellitus
     Dosage: 10 U/ 24 HORAS (10 U/ 24 HOURS)
     Route: 058
     Dates: start: 20211122
  4. ALPRAZOLAM [Concomitant]
     Active Substance: ALPRAZOLAM
     Indication: Anxiety
     Dosage: 1 DOSAGE FORM, ONCE A DAY (1 COMPRIMIDO CADA 24 HORAS)(1 TABLET EVERY 24 HOURS)
     Route: 048
     Dates: start: 201504
  5. AMITRIPTYLINE [Concomitant]
     Active Substance: AMITRIPTYLINE
     Indication: Product used for unknown indication
     Dosage: 1 DOSAGE FORM, TWO TIMES A DAY(1 COMPRIMIDO CADA 12 HORAS)(1 TABLET EVERY 12 HOURS)
     Route: 048
     Dates: start: 201504
  6. BISOPROLOL [Concomitant]
     Active Substance: BISOPROLOL
     Indication: Product used for unknown indication
     Dosage: 1 DOSAGE FORM, ONCE A DAY (1 COMPRIMIDO CADA 24 HORAS)(1 TABLET EVERY 24 HOURS)
     Route: 048
     Dates: start: 201507
  7. DAPAGLIFLOZIN [Concomitant]
     Active Substance: DAPAGLIFLOZIN
     Indication: Diabetes mellitus
     Dosage: 1 DOSAGE FORM, ONCE A DAY (1 COMPRIMIDO AL DIA)(1 TABLET A DAY)
     Route: 048
     Dates: start: 20211122
  8. FLUOXETINE [Concomitant]
     Active Substance: FLUOXETINE HYDROCHLORIDE
     Indication: Product used for unknown indication
     Dosage: 1 DOSAGE FORM, ONCE A DAY(1 COMPRIMIDO AL DIA)(1 TABLET A DAY)
     Route: 048
     Dates: start: 201503
  9. LINAGLIPTIN [Concomitant]
     Active Substance: LINAGLIPTIN
     Indication: Diabetes mellitus
     Dosage: 1 DOSAGE FORM, ONCE A DAY(1 COMPRIMIDO AL D?A)(1 TABLET A DAY)
     Route: 048
     Dates: start: 201804
  10. PANTOPRAZOLE SODIUM [Concomitant]
     Active Substance: PANTOPRAZOLE SODIUM
     Indication: Product used for unknown indication
     Dosage: 1 DOSAGE FORM, ONCE A DAY (1 COMPRIMIDO AL DIA (1 TABLET A DAY)
     Route: 048
     Dates: start: 20191030
  11. SIMVASTATIN [Concomitant]
     Active Substance: SIMVASTATIN
     Indication: Product used for unknown indication
     Dosage: 1 DOSAGE FORM, ONCE A DAY (1 COMPRIMIDO AL DIA)(1 TABLET A DAY)
     Route: 048
     Dates: start: 201707

REACTIONS (2)
  - Chronic kidney disease [Recovered/Resolved]
  - Hypotension [Recovered/Resolved]

NARRATIVE: CASE EVENT DATE: 20211208
